FAERS Safety Report 10021173 (Version 3)
Quarter: 2014Q2

REPORT INFORMATION
  Report Type: Report from Study
  Country: DE (occurrence: DE)
  Receive Date: 20140319
  Receipt Date: 20140401
  Transmission Date: 20141212
  Serious: Yes (Death, Hospitalization)
  Sender: FDA-Public Use
  Company Number: DE-ROCHE-1360722

PATIENT
  Age: 66 Year
  Sex: Male
  Weight: 63 kg

DRUGS (3)
  1. BEVACIZUMAB [Suspect]
     Indication: COLON CANCER
     Dosage: LAST DOSE OF BEVACIZUMAB PRIOR TO SAE ON 12/FEB/2014
     Route: 042
     Dates: start: 20130109
  2. CAPECITABINE [Suspect]
     Indication: COLON CANCER
     Dosage: DAILY FOR 14 DAY FROM DAY 1 AND  DAY 22 OF EACH CYCLE. LAST DOSE OF CAPECITABINE PRIOR TO SAE ON 26/
     Route: 048
     Dates: start: 20130109
  3. OXALIPLATIN [Suspect]
     Indication: COLON CANCER
     Dosage: LAST DOSE OF OXALIPLATIN PRIOR TO SAE ON 26/JUN/2013.
     Route: 042
     Dates: start: 20130109

REACTIONS (2)
  - Pneumonia [Fatal]
  - Nausea [Not Recovered/Not Resolved]
